FAERS Safety Report 8925511 (Version 2)
Quarter: 2012Q4

REPORT INFORMATION
  Report Type: 
  Country: US (occurrence: US)
  Receive Date: 20121126
  Receipt Date: 20121126
  Transmission Date: 20130627
  Serious: Yes (Other)
  Sender: FDA-Public Use
  Company Number: US-BAYER-2012-120096

PATIENT
  Age: 37 Year
  Sex: Female
  Weight: 65.31 kg

DRUGS (3)
  1. YASMIN [Suspect]
  2. OCELLA [Suspect]
  3. VICODIN [Concomitant]

REACTIONS (1)
  - Deep vein thrombosis [None]
